FAERS Safety Report 8400369-7 (Version None)
Quarter: 2012Q2

REPORT INFORMATION
  Report Type: 
  Country: None (occurrence: None)
  Receive Date: 20120531
  Receipt Date: 20120525
  Transmission Date: 20120825
  Serious: Yes (Hospitalization)
  Sender: FDA-Public Use
  Company Number: US-ACTELION-A-US2012-66011

PATIENT

DRUGS (3)
  1. TYVASO [Concomitant]
  2. ASPIRIN [Concomitant]
  3. TRACLEER [Suspect]
     Indication: PULMONARY ARTERIAL HYPERTENSION
     Dosage: UNK
     Route: 048
     Dates: start: 20101006

REACTIONS (5)
  - COUGH [None]
  - HEART RATE INCREASED [None]
  - DYSPNOEA [None]
  - HEADACHE [None]
  - DRY THROAT [None]
